FAERS Safety Report 8548434 (Version 25)
Quarter: 2013Q3

REPORT INFORMATION
  Report Type: Spontaneous
  Country: GB (occurrence: GB)
  Receive Date: 20120507
  Receipt Date: 20130821
  Transmission Date: 20140515
  Serious: Yes (Hospitalization, Other)
  Sender: FDA-Public Use
  Company Number: PHFR2012GB002623

PATIENT
  Age: 46 Year
  Sex: Male

DRUGS (8)
  1. CLOZARIL [Suspect]
     Indication: SCHIZOPHRENIA
     Dosage: UNK
     Route: 048
     Dates: start: 20010701
  2. CLOZARIL [Suspect]
     Dosage: UNK
     Route: 048
     Dates: start: 20130618
  3. AMISULPRIDE [Concomitant]
     Dosage: 800 MG, UNK
     Route: 048
  4. SERTRALINE [Concomitant]
     Dosage: 90 MG, UNK
     Route: 048
  5. AUDAX                              /07789801/ [Concomitant]
     Dosage: 400 MG, BID
     Route: 048
  6. ONDASETRON [Concomitant]
     Dosage: 4 MG, BID
     Route: 048
  7. ZOMORPH [Concomitant]
     Dosage: 10 MG, BID
     Route: 048
  8. LANSOPRAZOLE [Concomitant]
     Dosage: 30 G, UNK
     Route: 048

REACTIONS (10)
  - Lymphoma [Recovered/Resolved]
  - Antipsychotic drug level increased [Unknown]
  - Platelet count decreased [Unknown]
  - White blood cell count decreased [Recovered/Resolved]
  - Neutrophil count decreased [Recovered/Resolved]
  - Haemoglobin increased [Unknown]
  - White blood cell count increased [Recovered/Resolved]
  - Neutrophil count increased [Recovered/Resolved]
  - Haematocrit decreased [Unknown]
  - Haemoglobin decreased [Unknown]
